FAERS Safety Report 25595116 (Version 1)
Quarter: 2025Q3

REPORT INFORMATION
  Report Type: Spontaneous
  Country: EU (occurrence: EU)
  Receive Date: 20250723
  Receipt Date: 20250723
  Transmission Date: 20251020
  Serious: Yes (Hospitalization)
  Sender: MSN LABORATORIES PRIVATE LIMITED
  Company Number: EU-MSNLABS-2025MSNLIT01867

PATIENT

DRUGS (7)
  1. TICAGRELOR [Suspect]
     Active Substance: TICAGRELOR
     Indication: Antiplatelet therapy
     Route: 065
     Dates: end: 2024
  2. ASPIRIN [Suspect]
     Active Substance: ASPIRIN
     Indication: Antiplatelet therapy
     Dosage: 100 MG ONCE DAILY
     Route: 065
     Dates: start: 2015, end: 2024
  3. METFORMIN [Concomitant]
     Active Substance: METFORMIN HYDROCHLORIDE
     Indication: Type 2 diabetes mellitus
     Dosage: 500 MG TWICE DAILY
     Route: 065
     Dates: start: 2014
  4. RAMIPRIL [Concomitant]
     Active Substance: RAMIPRIL
     Indication: Hypertension
     Dosage: ONCE DAILY
     Route: 065
     Dates: start: 2014
  5. CLOPIDOGREL [Concomitant]
     Active Substance: CLOPIDOGREL BISULFATE
     Indication: Antiplatelet therapy
     Dosage: 75 MG ONCE DAILY
     Route: 065
     Dates: start: 2015
  6. ATORVASTATIN [Concomitant]
     Active Substance: ATORVASTATIN
     Dosage: ONCE DAILY AT NIGHT
     Route: 065
     Dates: start: 2015
  7. EZETIMIBE [Concomitant]
     Active Substance: EZETIMIBE
     Route: 065
     Dates: start: 2020

REACTIONS (3)
  - Hypochromic anaemia [Unknown]
  - Gastrointestinal disorder [Unknown]
  - Gastritis [Unknown]

NARRATIVE: CASE EVENT DATE: 20240101
